FAERS Safety Report 7562901-5 (Version None)
Quarter: 2011Q2

REPORT INFORMATION
  Report Type: 
  Country: None (occurrence: None)
  Receive Date: 20110622
  Receipt Date: 20110615
  Transmission Date: 20111010
  Serious: Yes (Other)
  Sender: FDA-Public Use
  Company Number: US-ROCHE-782751

PATIENT
  Sex: Male

DRUGS (3)
  1. CLARAVIS [Suspect]
     Indication: ACNE
     Route: 065
     Dates: start: 20060101, end: 20060101
  2. ACCUTANE [Suspect]
     Indication: ACNE
     Route: 065
     Dates: start: 19990101, end: 20000101
  3. AMNESTEEM [Suspect]
     Indication: ACNE
     Route: 065
     Dates: start: 20060101, end: 20060101

REACTIONS (2)
  - INFLAMMATORY BOWEL DISEASE [None]
  - ANXIETY [None]
